FAERS Safety Report 6062687-X (Version None)
Quarter: 2009Q1

REPORT INFORMATION
  Report Type: 
  Country: None (occurrence: None)
  Receive Date: 20090203
  Receipt Date: 20090127
  Transmission Date: 20090719
  Serious: Yes (Hospitalization)
  Sender: FDA-Public Use
  Company Number: US-KINGPHARMUSA00001-K200900083

PATIENT
  Age: 78 Year
  Sex: Female

DRUGS (9)
  1. ALTACE [Suspect]
     Indication: HYPERTENSION
     Dosage: 1.25 MG, QD
     Route: 048
     Dates: start: 20070101, end: 20081203
  2. EQUANIL [Suspect]
     Indication: AGITATION
     Dosage: 125 MG, QD
     Route: 048
     Dates: start: 20081021, end: 20081205
  3. REMINYL                            /00382001/ [Suspect]
     Indication: DEMENTIA
     Dosage: 16 MG, QD
     Route: 048
     Dates: start: 20080313, end: 20081203
  4. OXYBUTYNINE HCL [Suspect]
     Dosage: 2.5 MG, QD
     Route: 048
     Dates: start: 20070101, end: 20081203
  5. ATHYMIL [Suspect]
     Dosage: 10 MG, QD
     Route: 048
     Dates: start: 20070101, end: 20081206
  6. IMOVANE [Concomitant]
     Indication: SLEEP DISORDER
     Dosage: 3.75 MG, UNK
     Route: 048
  7. CALCIDOSE VITAMINE D [Concomitant]
     Indication: OSTEOPOROSIS
     Dosage: UNK
     Route: 048
  8. VASTAREL [Concomitant]
     Indication: VERTIGO
     Dosage: 70 MG, UNK
     Route: 048
     Dates: start: 20070101
  9. FORLAX [Concomitant]
     Indication: CONSTIPATION
     Dosage: 1 U, UNK
     Route: 048

REACTIONS (4)
  - BALANCE DISORDER [None]
  - SUPRAVENTRICULAR EXTRASYSTOLES [None]
  - TREMOR [None]
  - VERTIGO [None]
